FAERS Safety Report 14336190 (Version 1)
Quarter: 2017Q4

REPORT INFORMATION
  Report Type: Spontaneous
  Country: US (occurrence: US)
  Receive Date: 20171229
  Receipt Date: 20171229
  Transmission Date: 20180321
  Serious: Yes (Hospitalization)
  Sender: FDA-Public Use
  Company Number: US-BAYER-2017-221178

PATIENT
  Age: 33 Year
  Sex: Female

DRUGS (3)
  1. ADEMPAS [Suspect]
     Active Substance: RIOCIGUAT
     Indication: PULMONARY ARTERIAL HYPERTENSION
     Dosage: 2 MG, TID
     Route: 048
     Dates: start: 20160602
  2. LETAIRIS [Concomitant]
     Active Substance: AMBRISENTAN
     Indication: PULMONARY HYPERTENSION
  3. SELEXIPAG [Concomitant]
     Active Substance: SELEXIPAG
     Indication: PULMONARY HYPERTENSION

REACTIONS (3)
  - Pulmonary embolism [None]
  - Cholecystitis acute [None]
  - Atrial flutter [None]

NARRATIVE: CASE EVENT DATE: 20171031
